FAERS Safety Report 7928938-9 (Version None)
Quarter: 2011Q4

REPORT INFORMATION
  Report Type: 
  Country: None (occurrence: None)
  Receive Date: 20111118
  Receipt Date: 20111110
  Transmission Date: 20120403
  Serious: Yes (Other)
  Sender: FDA-Public Use
  Company Number: FR-BMSGILMSD-2011-0046689

PATIENT
  Sex: Male

DRUGS (3)
  1. TRUVADA [Concomitant]
     Indication: HIV INFECTION
     Dosage: UNK
     Dates: start: 20080701
  2. ATRIPLA [Suspect]
     Indication: HIV INFECTION
     Dosage: UNK
     Dates: start: 20090630
  3. SUSTIVA [Concomitant]
     Dosage: UNK
     Dates: start: 20080701

REACTIONS (1)
  - TONSIL CANCER [None]
